FAERS Safety Report 6265260-3 (Version None)
Quarter: 2009Q3

REPORT INFORMATION
  Report Type: 
  Country: None (occurrence: None)
  Receive Date: 20090713
  Receipt Date: 20090612
  Transmission Date: 20100115
  Serious: Yes (Hospitalization, Disabling)
  Sender: FDA-Public Use
  Company Number: AU-ELI_LILLY_AND_COMPANY-AU200903004309

PATIENT
  Sex: Male

DRUGS (5)
  1. ALIMTA [Suspect]
     Indication: MESOTHELIOMA
     Dosage: 500 MG/M2, EVERY 3 WEEKS
     Route: 065
     Dates: start: 20090121, end: 20090305
  2. CISPLATIN [Concomitant]
     Indication: MESOTHELIOMA
     Dosage: 75 MG/M2, UNKNOWN
     Route: 065
     Dates: start: 20090121, end: 20090305
  3. COVERSYL PLUS [Concomitant]
     Indication: HYPERTENSION
     Dosage: 130 MG, UNK
  4. FOLIC ACID [Concomitant]
     Indication: SUPPLEMENTATION THERAPY
     Dosage: 5 MG, DAILY (1/D)
     Route: 048
  5. VITAMIN B-12 [Concomitant]
     Indication: SUPPLEMENTATION THERAPY
     Dosage: 1 MG, MONTHLY (1/M)
     Route: 030

REACTIONS (3)
  - ENCEPHALITIS [None]
  - ENCEPHALOPATHY [None]
  - PARANEOPLASTIC SYNDROME [None]
